FAERS Safety Report 17869001 (Version 2)
Quarter: 2020Q3

REPORT INFORMATION
  Report Type: Report from Study
  Country: US (occurrence: US)
  Receive Date: 20200608
  Receipt Date: 20200701
  Transmission Date: 20201103
  Serious: Yes (Death)
  Sender: FDA-Public Use
  Company Number: US-TAIHO ONCOLOGY  INC-EU-2020-01745

PATIENT
  Sex: Female

DRUGS (18)
  1. ONDANSETRON [Concomitant]
     Active Substance: ONDANSETRON
     Dosage: EVERY 12 HOURS AS NEEDED
     Route: 048
  2. POTASSIUM CHLORIDE. [Concomitant]
     Active Substance: POTASSIUM CHLORIDE
     Dosage: EXTENDED RELEASE TABLETS
     Route: 048
  3. VITAMIN D [Concomitant]
     Active Substance: VITAMIN D NOS
     Route: 048
  4. XARELTO [Concomitant]
     Active Substance: RIVAROXABAN
     Route: 048
  5. NORCO [Concomitant]
     Active Substance: ACETAMINOPHEN\HYDROCODONE BITARTRATE
     Dosage: 7.5?325 MG, 1?2 TABLETS EVERY 4?6 HOURS (PRN, MAXIMUM 8 TABLETS PER DAY)
  6. PROCHLORPERAZINE. [Concomitant]
     Active Substance: PROCHLORPERAZINE
     Indication: NAUSEA
     Dosage: EVERY 6 HOURS AS NEEDED
     Route: 048
  7. DOXYCYCLINE HYCLATE. [Concomitant]
     Active Substance: DOXYCYCLINE HYCLATE
     Route: 048
  8. TRIAMCINOLONE [Concomitant]
     Active Substance: TRIAMCINOLONE
     Dosage: APPLY BID FOR 2 WEEKS THEN D/C FOR 2 WEEKS, REPEAT AS NEEDED
     Route: 061
  9. LONSURF [Suspect]
     Active Substance: TIPIRACIL HYDROCHLORIDE\TRIFLURIDINE
     Indication: COLON CANCER
     Dosage: CYCLE 1?3
     Route: 048
     Dates: start: 20200323, end: 20200514
  10. PEPCID [Concomitant]
     Active Substance: FAMOTIDINE
     Route: 048
  11. CENTRUM SILVER [Concomitant]
     Active Substance: MINERALS\VITAMINS
     Dosage: 0.4 MG?300 MCG?250 MCG DAILY
     Route: 048
  12. MAGNESIUM OXIDE. [Concomitant]
     Active Substance: MAGNESIUM OXIDE
     Route: 048
  13. FENTANYL. [Concomitant]
     Active Substance: FENTANYL
     Dosage: FORM OF ADMINISTRATION : TRANSDERMAL PATCH, 1 PATCH TRANSDERMALLY EVERY 72 HOURS.
     Route: 062
  14. MOVANTIK [Concomitant]
     Active Substance: NALOXEGOL OXALATE
     Dosage: 1 TABLET EVERY MORNING
     Route: 048
  15. REMERON [Concomitant]
     Active Substance: MIRTAZAPINE
     Route: 048
  16. GABAPENTIN. [Concomitant]
     Active Substance: GABAPENTIN
     Route: 048
  17. LASIX [Concomitant]
     Active Substance: FUROSEMIDE
     Dosage: 1?2 TABLETS DAILY PRN
     Route: 048
  18. AMLODIPINE [Concomitant]
     Active Substance: AMLODIPINE BESYLATE
     Route: 048

REACTIONS (1)
  - Disease progression [Fatal]
